FAERS Safety Report 6337528-3 (Version None)
Quarter: 2009Q3

REPORT INFORMATION
  Report Type: 
  Country: None (occurrence: None)
  Receive Date: 20090901
  Receipt Date: 20090901
  Transmission Date: 20100115
  Serious: Yes (Other)
  Sender: FDA-Public Use
  Company Number: None

PATIENT
  Age: 9 Year
  Sex: Female
  Weight: 29.4838 kg

DRUGS (1)
  1. BACTROBAN [Suspect]
     Indication: FOLLICULITIS
     Dosage: APPLY SMALL AMOUNT 3 TIMES DAILY TOP
     Route: 061
     Dates: start: 20090831, end: 20090831

REACTIONS (1)
  - URTICARIA [None]
